FAERS Safety Report 21782831 (Version 3)
Quarter: 2023Q1

REPORT INFORMATION
  Report Type: Spontaneous
  Country: US (occurrence: US)
  Receive Date: 20221227
  Receipt Date: 20230116
  Transmission Date: 20230417
  Serious: No
  Sender: FDA-Public Use
  Company Number: US-BIOVITRUM-2022US15309

PATIENT
  Age: 48 Year
  Sex: Female

DRUGS (2)
  1. KINERET [Suspect]
     Active Substance: ANAKINRA
     Indication: Still^s disease
     Dates: start: 20221202
  2. KINERET [Suspect]
     Active Substance: ANAKINRA
     Dates: start: 20221217

REACTIONS (11)
  - Back pain [Unknown]
  - Flank pain [Unknown]
  - Oropharyngeal pain [Unknown]
  - Lymphadenopathy [Unknown]
  - Myalgia [Unknown]
  - Chest discomfort [Unknown]
  - Muscle tightness [Unknown]
  - Headache [Unknown]
  - Injection site bruising [Unknown]
  - Injection site pain [Unknown]
  - Off label use [Unknown]

NARRATIVE: CASE EVENT DATE: 20221201
